FAERS Safety Report 10403681 (Version 1)
Quarter: 2014Q3

REPORT INFORMATION
  Report Type: Spontaneous
  Country: US (occurrence: US)
  Receive Date: 20140822
  Receipt Date: 20140822
  Transmission Date: 20150326
  Serious: No
  Sender: FDA-Public Use
  Company Number: US-ASTRAZENECA-2014SE00742

PATIENT
  Age: 85 Year
  Sex: Female
  Weight: 65.8 kg

DRUGS (5)
  1. SPIRIVA [Concomitant]
     Active Substance: TIOTROPIUM BROMIDE MONOHYDRATE
     Indication: CHRONIC OBSTRUCTIVE PULMONARY DISEASE
     Dosage: 18 MCG DAILY
     Route: 055
  2. HYDROCODONE [Concomitant]
     Active Substance: HYDROCODONE
     Indication: TOOTHACHE
     Dosage: NOT ASKED PRN
     Route: 048
  3. SYMBICORT [Suspect]
     Active Substance: BUDESONIDE\FORMOTEROL FUMARATE DIHYDRATE
     Indication: CHRONIC OBSTRUCTIVE PULMONARY DISEASE
     Dosage: 80/ 4.5 MCG, 2 PUFFS, BID
     Route: 055
     Dates: start: 2011
  4. METHOTREXATE [Concomitant]
     Active Substance: METHOTREXATE
     Indication: ARTHRITIS
     Route: 048
  5. ZOPENEX [Concomitant]
     Indication: INHALATION THERAPY
     Dosage: ONCE EVERY 1-2 WEEKS
     Route: 055

REACTIONS (3)
  - Dyspnoea [Unknown]
  - Off label use [Unknown]
  - Circumstance or information capable of leading to medication error [Unknown]
